FAERS Safety Report 12981841 (Version 1)
Quarter: 2016Q4

REPORT INFORMATION
  Report Type: Spontaneous
  Country: US (occurrence: US)
  Receive Date: 20161128
  Receipt Date: 20161128
  Transmission Date: 20170207
  Serious: Yes (Other)
  Sender: FDA-Public Use
  Company Number: None

PATIENT
  Sex: Female
  Weight: 58.11 kg

DRUGS (1)
  1. FORTEO [Suspect]
     Active Substance: TERIPARATIDE
     Indication: OSTEOPOROSIS
     Route: 058
     Dates: start: 201511, end: 20161123

REACTIONS (5)
  - Pruritus [None]
  - Insomnia [None]
  - Rash pruritic [None]
  - Mouth ulceration [None]
  - Burning sensation [None]

NARRATIVE: CASE EVENT DATE: 2016
